FAERS Safety Report 5604502-1 (Version None)
Quarter: 2008Q1

REPORT INFORMATION
  Report Type: 
  Country: None (occurrence: None)
  Receive Date: 20080128
  Receipt Date: 20080122
  Transmission Date: 20080703
  Serious: Yes (Death, Life-Threatening, Hospitalization, Other)
  Sender: FDA-Public Use
  Company Number: GB-BRISTOL-MYERS SQUIBB COMPANY-14041099

PATIENT
  Age: 25 Year
  Sex: Male

DRUGS (10)
  1. EFAVIRENZ [Suspect]
     Indication: PNEUMOCYSTIS JIROVECI PNEUMONIA
  2. CIPROFLOXACIN [Suspect]
     Indication: PNEUMOCYSTIS JIROVECI PNEUMONIA
  3. IBUPROFEN [Suspect]
     Indication: PAIN IN EXTREMITY
  4. CLARITHROMYCIN [Suspect]
     Indication: PNEUMOCYSTIS JIROVECI PNEUMONIA
  5. COMBIVIR [Suspect]
     Indication: HIV INFECTION
  6. CO-TRIMOXAZOLE [Suspect]
     Indication: PNEUMOCYSTIS JIROVECI PNEUMONIA
  7. LAMIVUDINE [Suspect]
     Indication: HIV INFECTION
  8. NEVIRAPINE [Suspect]
     Indication: HIV INFECTION
  9. TENOFOVIR DISOPROXIL FUMARATE [Suspect]
     Indication: HIV INFECTION
  10. LOPERAMIDE HCL [Concomitant]
     Indication: DIARRHOEA

REACTIONS (2)
  - SEPSIS [None]
  - VANISHING BILE DUCT SYNDROME [None]
